FAERS Safety Report 23555320 (Version 1)
Quarter: 2024Q1

REPORT INFORMATION
  Report Type: Spontaneous
  Country: US (occurrence: US)
  Receive Date: 20240222
  Receipt Date: 20240222
  Transmission Date: 20240410
  Serious: No
  Sender: FDA-Public Use
  Company Number: US-LANTHEUS-LMI-2023-01153

PATIENT
  Age: 57 Year
  Sex: Female
  Weight: 47 kg

DRUGS (1)
  1. DEFINITY [Suspect]
     Active Substance: PERFLUTREN
     Indication: Echocardiogram
     Dosage: 2 MILLILITRE (2.0 ML DEFINITY PREPARED IN 8.0 ML NS)
     Route: 042
     Dates: start: 20230920, end: 20230920

REACTIONS (6)
  - Hypokinesia [Recovered/Resolved]
  - Speech disorder [Recovered/Resolved]
  - Crying [Recovered/Resolved]
  - Screaming [Recovered/Resolved]
  - Neck pain [Recovered/Resolved]
  - Back pain [Recovered/Resolved]

NARRATIVE: CASE EVENT DATE: 20230920
